FAERS Safety Report 25737588 (Version 1)
Quarter: 2025Q3

REPORT INFORMATION
  Report Type: Spontaneous
  Country: US (occurrence: US)
  Receive Date: 20250828
  Receipt Date: 20250828
  Transmission Date: 20251021
  Serious: No
  Sender: BAUSCH AND LOMB
  Company Number: US-BAUSCHBL-2025BNL014905

PATIENT
  Sex: Female

DRUGS (1)
  1. DEXAMETHASONE\NEOMYCIN\POLYMYXIN B SULFATE [Suspect]
     Active Substance: DEXAMETHASONE\NEOMYCIN\POLYMYXIN B SULFATE
     Indication: Product used for unknown indication
     Route: 047
     Dates: start: 202508

REACTIONS (4)
  - Abnormal sensation in eye [Unknown]
  - Wrong product administered [Unknown]
  - Prescription drug used without a prescription [Unknown]
  - Product confusion [Unknown]

NARRATIVE: CASE EVENT DATE: 20250801
